FAERS Safety Report 5165957-2 (Version None)
Quarter: 2006Q4

REPORT INFORMATION
  Report Type: 
  Country: None (occurrence: None)
  Receive Date: 20061206
  Receipt Date: 20061102
  Transmission Date: 20070319
  Serious: Yes (Hospitalization)
  Sender: FDA-Public Use
  Company Number: US-ABBOTT-06P-163-0348934-00

PATIENT
  Sex: Female
  Weight: 109 kg

DRUGS (2)
  1. BIAXIN XL [Suspect]
     Indication: LOBAR PNEUMONIA
     Route: 048
     Dates: start: 20061010, end: 20061011
  2. ESTROGENIC SUBSTANCE [Concomitant]
     Indication: HORMONE REPLACEMENT THERAPY
     Dates: start: 20030101

REACTIONS (9)
  - ABASIA [None]
  - ADVERSE DRUG REACTION [None]
  - ARTHRALGIA [None]
  - BLOOD PRESSURE INCREASED [None]
  - JOINT STIFFNESS [None]
  - JOINT SWELLING [None]
  - PAIN [None]
  - RASH ERYTHEMATOUS [None]
  - WEIGHT BEARING DIFFICULTY [None]
